FAERS Safety Report 4541567-2 (Version None)
Quarter: 2004Q4

REPORT INFORMATION
  Report Type: 
  Country: None (occurrence: None)
  Receive Date: 20041227
  Receipt Date: 20041215
  Transmission Date: 20050328
  Serious: Yes (Other)
  Sender: FDA-Public Use
  Company Number: 2004116001

PATIENT
  Sex: 0

DRUGS (1)
  1. SOMATROPIN (SOMATROPIN) [Suspect]
     Indication: ILL-DEFINED DISORDER
     Dosage: SUBUCTANEOUS
     Route: 058

REACTIONS (1)
  - RECTAL CANCER [None]
